FAERS Safety Report 9031373 (Version 1)
Quarter: 2013Q1

REPORT INFORMATION
  Report Type: Report from Study
  Country: CO (occurrence: CO)
  Receive Date: 20130124
  Receipt Date: 20130124
  Transmission Date: 20140127
  Serious: Yes (Other)
  Sender: FDA-Public Use
  Company Number: CO-SANOFI-AVENTIS-2013SA004668

PATIENT
  Sex: Male

DRUGS (2)
  1. RIFAMPICIN [Suspect]
     Indication: TUBERCULOSIS
     Route: 065
  2. ITRACONAZOLE [Interacting]
     Indication: HISTOPLASMOSIS
     Route: 065

REACTIONS (4)
  - Tuberculosis [Unknown]
  - Treatment failure [Unknown]
  - Drug interaction [Unknown]
  - Histoplasmosis [Unknown]
